FAERS Safety Report 6623813-4 (Version None)
Quarter: 2010Q1

REPORT INFORMATION
  Report Type: 
  Country: None (occurrence: None)
  Receive Date: 20100310
  Receipt Date: 20100225
  Transmission Date: 20100710
  Serious: Yes (Disabling, Other)
  Sender: FDA-Public Use
  Company Number: PHHY2009JP41682

PATIENT
  Sex: Male
  Weight: 46 kg

DRUGS (10)
  1. CYCLOSPORINE [Suspect]
     Indication: GLOMERULONEPHRITIS MEMBRANOUS
     Dosage: UNK
     Route: 048
  2. CYCLOSPORINE [Suspect]
     Dosage: 75 MG DAILY
     Route: 048
     Dates: start: 20080901
  3. CYCLOSPORINE [Suspect]
     Dosage: 75 MG DAILY
     Route: 048
     Dates: end: 20090610
  4. CYCLOSPORINE [Suspect]
     Dosage: UNK
  5. PREDNISOLONE [Suspect]
     Indication: GLOMERULONEPHRITIS MEMBRANOUS
     Dosage: 10 MG DAILY
     Route: 048
     Dates: end: 20080816
  6. THYRADIN S [Concomitant]
     Indication: HYPOTHYROIDISM
     Dosage: UNK
     Route: 048
  7. ALFAROL [Concomitant]
     Indication: BONE METABOLISM DISORDER
     Dosage: UNK
     Route: 048
  8. GASTER D [Concomitant]
     Indication: SECRETION GASTRIC ABSENT
     Dosage: UNK
     Route: 048
  9. FERRUM [Concomitant]
     Indication: ANAEMIA
     Dosage: UNK
     Route: 048
  10. BLOPRESS [Concomitant]
     Indication: BLOOD PRESSURE
     Dosage: UNK
     Route: 048

REACTIONS (7)
  - ARTHRALGIA [None]
  - DISEASE RECURRENCE [None]
  - GLOMERULONEPHRITIS MEMBRANOUS [None]
  - HIP ARTHROPLASTY [None]
  - NASOPHARYNGITIS [None]
  - OSTEONECROSIS [None]
  - RENAL IMPAIRMENT [None]
